FAERS Safety Report 11337791 (Version 1)
Quarter: 2015Q3

REPORT INFORMATION
  Report Type: Spontaneous
  Country: US (occurrence: US)
  Receive Date: 20150803
  Receipt Date: 20150803
  Transmission Date: 20151125
  Serious: No
  Sender: FDA-Public Use
  Company Number: US-ELI_LILLY_AND_COMPANY-US200912004255

PATIENT
  Age: 31 Year
  Sex: Male
  Weight: 86.17 kg

DRUGS (7)
  1. ZYPREXA [Suspect]
     Active Substance: OLANZAPINE
     Dosage: 2.5 MG, DAILY (1/D)
  2. ZYPREXA ZYDIS [Suspect]
     Active Substance: OLANZAPINE
     Dosage: 15 MG, DAILY (1/D)
  3. ZYPREXA [Suspect]
     Active Substance: OLANZAPINE
     Indication: SCHIZOPHRENIA
     Dates: start: 19970128
  4. CLOZARIL [Concomitant]
     Active Substance: CLOZAPINE
     Dosage: 50 MG, DAILY (1/D)
     Dates: start: 20091201
  5. CLOZARIL [Concomitant]
     Active Substance: CLOZAPINE
     Dosage: 100 MG, DAILY (1/D)
     Dates: start: 20091207
  6. CLOZARIL [Concomitant]
     Active Substance: CLOZAPINE
     Dosage: 200 MG, DAILY (1/D)
     Dates: start: 20091215
  7. ZYPREXA ZYDIS [Suspect]
     Active Substance: OLANZAPINE
     Indication: SCHIZOPHRENIA
     Dates: start: 19970128

REACTIONS (5)
  - Headache [Not Recovered/Not Resolved]
  - Lethargy [Not Recovered/Not Resolved]
  - Asthenia [Not Recovered/Not Resolved]
  - Malaise [Not Recovered/Not Resolved]
  - Neck pain [Not Recovered/Not Resolved]

NARRATIVE: CASE EVENT DATE: 20091215
